FAERS Safety Report 11944496 (Version 2)
Quarter: 2016Q1

REPORT INFORMATION
  Report Type: Spontaneous
  Country: JP (occurrence: JP)
  Receive Date: 20160125
  Receipt Date: 20160213
  Transmission Date: 20160526
  Serious: Yes (Other)
  Sender: FDA-Public Use
  Company Number: JP-ACCORD-037315

PATIENT
  Age: 66 Year
  Sex: Male

DRUGS (1)
  1. PACLITAXEL/PACLITAXEL LIPOSOME [Suspect]
     Active Substance: PACLITAXEL
     Indication: GASTRIC CANCER
     Dosage: POLYETHYLATED CASTOR OIL-BASED PACLITAXEL, TOTAL: 30 TREATMENTS
     Route: 042

REACTIONS (1)
  - Cystoid macular oedema [Recovered/Resolved]
